FAERS Safety Report 7322834-6 (Version None)
Quarter: 2011Q1

REPORT INFORMATION
  Report Type: 
  Country: None (occurrence: None)
  Receive Date: 20110215
  Receipt Date: 20110203
  Transmission Date: 20110831
  Serious: Yes (Hospitalization)
  Sender: FDA-Public Use
  Company Number: BCTM20110009

PATIENT
  Age: 77 Year
  Sex: Female
  Weight: 61.7 kg

DRUGS (14)
  1. UNSPECIFIED BREATHING TREATMENT [Suspect]
     Indication: PRODUCT USED FOR UNKNOWN INDICATION
     Dosage: ONCE, INHALATION
     Route: 055
     Dates: start: 20101207, end: 20101207
  2. COUMADIN [Concomitant]
  3. SYNTHROID [Concomitant]
  4. BROVANA [Suspect]
     Indication: WHEEZING
     Dosage: 15 UG/2 ML, ONCE, INHALATION
     Route: 055
     Dates: start: 20101207, end: 20101207
  5. BROVANA [Suspect]
     Indication: COUGH
     Dosage: 15 UG/2 ML, ONCE, INHALATION
     Route: 055
     Dates: start: 20101207, end: 20101207
  6. BROVANA [Suspect]
     Indication: INCREASED UPPER AIRWAY SECRETION
     Dosage: 15 UG/2 ML, ONCE, INHALATION
     Route: 055
     Dates: start: 20101207, end: 20101207
  7. AMBIEN [Concomitant]
  8. VICODIN [Concomitant]
  9. BACTRIM [Suspect]
     Indication: PRODUCT USED FOR UNKNOWN INDICATION
     Dosage: ONCE,
     Dates: start: 20101207, end: 20101207
  10. PROVENTIL [Concomitant]
  11. MEDROL [Suspect]
     Indication: PRODUCT USED FOR UNKNOWN INDICATION
     Dosage: ONCE, PARENTERAL
     Route: 051
     Dates: start: 20101207, end: 20101207
  12. LANOXIN [Concomitant]
  13. VERAPAMIL [Concomitant]
  14. CALCIUM [Concomitant]

REACTIONS (7)
  - TREMOR [None]
  - BLOOD GLUCOSE INCREASED [None]
  - HYPERTENSION [None]
  - PNEUMONIA [None]
  - HEART RATE INCREASED [None]
  - HYPOTENSION [None]
  - MEMORY IMPAIRMENT [None]
